FAERS Safety Report 8800471 (Version 1)
Quarter: 2012Q4

REPORT INFORMATION
  Report Type: Report from Study
  Country: HU (occurrence: HU)
  Receive Date: 20120921
  Receipt Date: 20120921
  Transmission Date: 20130627
  Serious: Yes (Hospitalization, Other)
  Sender: FDA-Public Use
  Company Number: HU-ROCHE-1126173

PATIENT
  Age: 79 Year
  Sex: Female

DRUGS (1)
  1. XELODA [Suspect]
     Indication: COLON CANCER
     Dosage: 2x5, frequency reported as DAYS
     Route: 048
     Dates: start: 20090507, end: 200910

REACTIONS (2)
  - Thrombosis [Unknown]
  - Computerised tomogram abnormal [Unknown]
